FAERS Safety Report 6246322-3 (Version None)
Quarter: 2009Q2

REPORT INFORMATION
  Report Type: 
  Country: None (occurrence: None)
  Receive Date: 20090624
  Receipt Date: 20090624
  Transmission Date: 20091009
  Serious: Yes (Hospitalization)
  Sender: FDA-Public Use
  Company Number: None

PATIENT
  Age: 67 Year
  Sex: Male
  Weight: 99.34 kg

DRUGS (2)
  1. CLOPIDOGREL [Suspect]
     Indication: ANTIPLATELET THERAPY
     Dosage: 75 MG EVERY DAY PO
     Route: 048
     Dates: start: 20090217, end: 20090228
  2. CLOPIDOGREL [Suspect]
     Indication: VASCULAR OPERATION
     Dosage: 75 MG EVERY DAY PO
     Route: 048
     Dates: start: 20090217, end: 20090228

REACTIONS (2)
  - GASTRIC HAEMORRHAGE [None]
  - HAEMORRHAGE [None]
